FAERS Safety Report 21052903 (Version 1)
Quarter: 2022Q3

REPORT INFORMATION
  Report Type: Spontaneous
  Country: JP (occurrence: JP)
  Receive Date: 20220707
  Receipt Date: 20220707
  Transmission Date: 20221026
  Serious: Yes (Other)
  Sender: FDA-Public Use
  Company Number: JP-COLLEGIUM PHARMACEUTICAL, INC.-2022CGM00427

PATIENT
  Age: 80 Year
  Sex: Female

DRUGS (21)
  1. TAPENTADOL [Suspect]
     Active Substance: TAPENTADOL
     Indication: Cancer pain
     Dosage: UNK
     Route: 048
  2. TAPENTADOL [Suspect]
     Active Substance: TAPENTADOL
     Dosage: 200 MG, 1X/DAY
     Route: 048
  3. TAPENTADOL [Suspect]
     Active Substance: TAPENTADOL
     Dosage: 100 MG, 1X/DAY
     Route: 048
  4. TAPENTADOL [Suspect]
     Active Substance: TAPENTADOL
     Dosage: 50 MG, 1X/DAY
     Route: 048
  5. TRAMADOL HYDROCHLORIDE [Suspect]
     Active Substance: TRAMADOL HYDROCHLORIDE
     Indication: Cancer pain
     Dosage: UNK
  6. TRAMADOL HYDROCHLORIDE [Suspect]
     Active Substance: TRAMADOL HYDROCHLORIDE
     Dosage: 100 MG, 1X/DAY
  7. TRAMADOL HYDROCHLORIDE [Suspect]
     Active Substance: TRAMADOL HYDROCHLORIDE
     Dosage: 300 MG, 1X/DAY
  8. DULOXETINE [Suspect]
     Active Substance: DULOXETINE
     Indication: Cancer pain
     Dosage: UNK
  9. DULOXETINE [Suspect]
     Active Substance: DULOXETINE
     Dosage: 20 MG, 1X/DAY
  10. LYRICA [Concomitant]
     Active Substance: PREGABALIN
  11. LOXOPROFEN SODIUM [Concomitant]
     Active Substance: LOXOPROFEN SODIUM
  12. CALONAL [Concomitant]
     Active Substance: ACETAMINOPHEN
  13. OXINORM [Concomitant]
  14. BROTIZOLAM [Concomitant]
     Active Substance: BROTIZOLAM
  15. LANSOPRAZOLE [Concomitant]
     Active Substance: LANSOPRAZOLE
  16. ONEALFA [Concomitant]
     Active Substance: ALFACALCIDOL
  17. MAGNESIUM OXIDE [Concomitant]
     Active Substance: MAGNESIUM OXIDE
  18. NORVASC [Concomitant]
     Active Substance: AMLODIPINE BESYLATE
  19. ALENDRONATE SODIUM [Concomitant]
     Active Substance: ALENDRONATE SODIUM
  20. DEPAS [Concomitant]
  21. ALLEGRA [Concomitant]
     Active Substance: FEXOFENADINE HYDROCHLORIDE

REACTIONS (5)
  - Serotonin syndrome [Recovering/Resolving]
  - Depression [Not Recovered/Not Resolved]
  - Pain [Unknown]
  - Drug interaction [Unknown]
  - Drug interaction [Unknown]
